FAERS Safety Report 5199846-4 (Version None)
Quarter: 2006Q4

REPORT INFORMATION
  Report Type: 
  Country: None (occurrence: None)
  Receive Date: 20061229
  Receipt Date: 20061221
  Transmission Date: 20070319
  Serious: Yes (Other)
  Sender: FDA-Public Use
  Company Number: 2006AL004017

PATIENT
  Sex: Female

DRUGS (3)
  1. DICLOFENAC SODIUM [Suspect]
     Indication: DRUG USE FOR UNKNOWN INDICATION
     Dosage: UNKNOWN; UNK; PO
     Route: 048
  2. CLOPIDOGREL [Concomitant]
  3. ASPIRIN [Concomitant]

REACTIONS (1)
  - PERICARDIAL HAEMORRHAGE [None]
